FAERS Safety Report 18621453 (Version 1)
Quarter: 2020Q4

REPORT INFORMATION
  Report Type: Report from Study
  Country: US (occurrence: US)
  Receive Date: 20201216
  Receipt Date: 20201216
  Transmission Date: 20210114
  Serious: No
  Sender: FDA-Public Use
  Company Number: US-IPSEN BIOPHARMACEUTICALS, INC.-2020-24173

PATIENT
  Sex: Male

DRUGS (3)
  1. SOMATULINE DEPOT [Suspect]
     Active Substance: LANREOTIDE ACETATE
     Indication: OFF LABEL USE
  2. OCTREOTIDE. [Concomitant]
     Active Substance: OCTREOTIDE
     Dosage: 3 INJECTIONS DAILY
  3. SOMATULINE DEPOT [Suspect]
     Active Substance: LANREOTIDE ACETATE
     Indication: PANCREATIC CARCINOMA
     Dosage: UNKNOWN
     Route: 065

REACTIONS (3)
  - Adverse drug reaction [Unknown]
  - Injection site pain [Recovered/Resolved]
  - Off label use [Unknown]
